FAERS Safety Report 23959881 (Version 1)
Quarter: 2024Q2

REPORT INFORMATION
  Report Type: Spontaneous
  Country: FR (occurrence: FR)
  Receive Date: 20240611
  Receipt Date: 20240611
  Transmission Date: 20240716
  Serious: Yes (Other)
  Sender: FDA-Public Use
  Company Number: FR-JNJFOC-20240609947

PATIENT
  Sex: Male

DRUGS (2)
  1. ERDAFITINIB [Suspect]
     Active Substance: ERDAFITINIB
     Indication: Product used for unknown indication
     Dosage: THIRD LINE
     Route: 065
  2. ERDAFITINIB [Suspect]
     Active Substance: ERDAFITINIB
     Route: 065
     Dates: start: 20240527

REACTIONS (2)
  - Nail toxicity [Recovered/Resolved]
  - Palmar-plantar erythrodysaesthesia syndrome [Recovered/Resolved]
